FAERS Safety Report 13333003 (Version 2)
Quarter: 2017Q1

REPORT INFORMATION
  Report Type: Report from Study
  Country: HU (occurrence: HU)
  Receive Date: 20170314
  Receipt Date: 20170324
  Transmission Date: 20170428
  Serious: Yes (Death)
  Sender: FDA-Public Use
  Company Number: HU-PFIZER INC-2017110400

PATIENT
  Age: 42 Year
  Sex: Male

DRUGS (6)
  1. OXYCONTIN [Concomitant]
     Active Substance: OXYCODONE HYDROCHLORIDE
     Dosage: 2X10 MG
  2. PALBOCICLIB [Suspect]
     Active Substance: PALBOCICLIB
     Dosage: 1 DF, FIRST CYCLE DAILY, 3 WEEK MEDICATION TAKING/1 WEEK BREAK
     Route: 048
     Dates: start: 20160912
  3. PALBOCICLIB [Suspect]
     Active Substance: PALBOCICLIB
     Dosage: 1 DF, DAILY, 3 WEEK MEDICATION TAKING/1 WEEK BREAK
     Route: 048
     Dates: start: 20161010
  4. PALBOCICLIB [Suspect]
     Active Substance: PALBOCICLIB
     Dosage: 1 DF, DAILY, 3 WEEK MEDICATION TAKING/1 WEEK BREAK
     Route: 048
     Dates: start: 20161107
  5. PALBOCICLIB [Suspect]
     Active Substance: PALBOCICLIB
     Dosage: 1 DF, DAILY, 3 WEEK MEDICATION TAKING/1 WEEK BREAK
     Route: 048
     Dates: start: 20161205
  6. PALBOCICLIB [Suspect]
     Active Substance: PALBOCICLIB
     Dosage: 1 DF, DAILY, 3 WEEK MEDICATION TAKING/1 WEEK BREAK
     Route: 048
     Dates: start: 20170102

REACTIONS (1)
  - Neoplasm progression [Fatal]
